FAERS Safety Report 18147969 (Version 1)
Quarter: 2020Q3

REPORT INFORMATION
  Report Type: Spontaneous
  Country: HK (occurrence: HK)
  Receive Date: 20200814
  Receipt Date: 20200814
  Transmission Date: 20201103
  Serious: Yes (Other)
  Sender: FDA-Public Use
  Company Number: HK-ROCHE-2652861

PATIENT
  Age: 54 Year
  Sex: Female

DRUGS (15)
  1. BEVACIZUMAB. [Suspect]
     Active Substance: BEVACIZUMAB
     Route: 065
     Dates: start: 201911, end: 202002
  2. CARBOPLATIN. [Suspect]
     Active Substance: CARBOPLATIN
     Indication: LUNG ADENOCARCINOMA
     Route: 065
     Dates: start: 20170926, end: 20171030
  3. PEMETREXED. [Suspect]
     Active Substance: PEMETREXED
     Indication: LUNG ADENOCARCINOMA
     Route: 065
     Dates: start: 20170926, end: 20171030
  4. CARBOPLATIN. [Suspect]
     Active Substance: CARBOPLATIN
     Route: 065
     Dates: start: 201810, end: 201911
  5. OSIMERTINIB. [Suspect]
     Active Substance: OSIMERTINIB
     Indication: LUNG ADENOCARCINOMA
     Route: 065
     Dates: start: 201807, end: 201810
  6. PACLITAXEL. [Suspect]
     Active Substance: PACLITAXEL
     Indication: LUNG ADENOCARCINOMA
     Route: 065
     Dates: start: 201810, end: 201911
  7. BEVACIZUMAB. [Suspect]
     Active Substance: BEVACIZUMAB
     Route: 065
     Dates: start: 202002
  8. GEFITINIB. [Suspect]
     Active Substance: GEFITINIB
     Indication: LUNG ADENOCARCINOMA
     Route: 065
     Dates: start: 20161214, end: 201709
  9. IRINOTECAN [Suspect]
     Active Substance: IRINOTECAN
     Indication: LUNG ADENOCARCINOMA
     Route: 065
     Dates: start: 201911, end: 202002
  10. BEVACIZUMAB. [Suspect]
     Active Substance: BEVACIZUMAB
     Indication: LUNG ADENOCARCINOMA
     Route: 065
     Dates: start: 20170926, end: 20171030
  11. BEVACIZUMAB. [Suspect]
     Active Substance: BEVACIZUMAB
     Route: 065
     Dates: start: 201810, end: 201911
  12. ATEZOLIZUMAB. [Suspect]
     Active Substance: ATEZOLIZUMAB
     Indication: LUNG ADENOCARCINOMA
     Route: 065
     Dates: start: 201810, end: 201911
  13. CARBOPLATIN. [Suspect]
     Active Substance: CARBOPLATIN
     Route: 065
     Dates: start: 201911, end: 202002
  14. AFATINIB [Suspect]
     Active Substance: AFATINIB
     Indication: LUNG ADENOCARCINOMA
     Route: 065
     Dates: start: 201711, end: 201807
  15. OSIMERTINIB. [Suspect]
     Active Substance: OSIMERTINIB
     Route: 065
     Dates: start: 202002

REACTIONS (8)
  - Carcinoembryonic antigen increased [Not Recovered/Not Resolved]
  - Bone pain [Unknown]
  - Intentional product use issue [Unknown]
  - Metastases to meninges [Recovering/Resolving]
  - Off label use [Unknown]
  - Therapy partial responder [Unknown]
  - Gene mutation [Unknown]
  - Metastases to bone [Not Recovered/Not Resolved]

NARRATIVE: CASE EVENT DATE: 201807
